FAERS Safety Report 8824693 (Version 2)
Quarter: 2012Q4

REPORT INFORMATION
  Report Type: 
  Country: JP (occurrence: JP)
  Receive Date: 20121004
  Receipt Date: 20121205
  Transmission Date: 20130627
  Serious: Yes (Other)
  Sender: FDA-Public Use
  Company Number: JP-B.I. PHARMACEUTICALS,INC./RIDGEFIELD-2012-BP-24268YA

PATIENT
  Age: 76 Year
  Sex: Male

DRUGS (1)
  1. TAMSULOSINA [Suspect]
     Dosage: 0.2 mg
     Route: 048
     Dates: start: 201207

REACTIONS (1)
  - Platelet count decreased [Unknown]
